FAERS Safety Report 9674770 (Version 3)
Quarter: 2015Q1

REPORT INFORMATION
  Report Type: Report from Study
  Country: US (occurrence: US)
  Receive Date: 20131107
  Receipt Date: 20150304
  Transmission Date: 20150721
  Serious: Yes (Hospitalization)
  Sender: FDA-Public Use
  Company Number: US-MPIJNJ-2013MPI000764

PATIENT
  Age: 69 Year
  Sex: Female
  Weight: 64.4 kg

DRUGS (1)
  1. VELCADE [Suspect]
     Active Substance: BORTEZOMIB
     Indication: PLASMA CELL MYELOMA
     Dosage: 3.5 MG, Q3WEEKS
     Route: 042
     Dates: start: 20130213

REACTIONS (1)
  - Pelvic prolapse [Recovered/Resolved]

NARRATIVE: CASE EVENT DATE: 20130313
